FAERS Safety Report 4623478-7 (Version None)
Quarter: 2005Q1

REPORT INFORMATION
  Report Type: 
  Country: None (occurrence: None)
  Receive Date: 20050330
  Receipt Date: 20050316
  Transmission Date: 20050727
  Serious: Yes (Other)
  Sender: FDA-Public Use
  Company Number: 2005046324

PATIENT
  Age: 7 Year
  Sex: Female

DRUGS (5)
  1. ETHOSUXIMIDE [Suspect]
     Indication: EPILEPSY
     Dosage: ORAL
     Route: 048
  2. CARBAMAZEPINE [Suspect]
     Indication: EPILEPSY
     Dosage: ORAL
     Route: 048
  3. VALPROATE SODIUM [Suspect]
     Indication: EPILEPSY
     Dosage: ORAL
     Route: 048
  4. ZONISAMIDE (ZONISAMIDE) [Suspect]
     Indication: EPILEPSY
     Dosage: ORAL
     Route: 048
  5. CLONAZEPAM [Suspect]
     Indication: EPILEPSY
     Dosage: ORAL
     Route: 048

REACTIONS (7)
  - CONVULSION [None]
  - DRUG ERUPTION [None]
  - ELECTROENCEPHALOGRAM ABNORMAL [None]
  - FATIGUE [None]
  - LIVER DISORDER [None]
  - MOOD ALTERED [None]
  - POLLAKIURIA [None]
